FAERS Safety Report 14410571 (Version 1)
Quarter: 2018Q1

REPORT INFORMATION
  Report Type: Spontaneous
  Country: BR (occurrence: BR)
  Receive Date: 20180119
  Receipt Date: 20180119
  Transmission Date: 20180509
  Serious: Yes (Hospitalization, Other)
  Sender: FDA-Public Use
  Company Number: PHHY2016BR176022

PATIENT
  Sex: Female
  Weight: 65 kg

DRUGS (3)
  1. CICLO [Concomitant]
     Indication: ORAL CONTRACEPTION
     Dosage: 1 DF, QD
     Route: 048
  2. AMOXICILLIN + CLAVULANATE POTASSIUM [Suspect]
     Active Substance: AMOXICILLIN\CLAVULANATE POTASSIUM
     Indication: POSTOPERATIVE WOUND INFECTION
     Dosage: 500 MG, TID
     Route: 048
     Dates: start: 20170522, end: 20170607
  3. AMOXICILLIN + CLAVULANATE POTASSIUM [Suspect]
     Active Substance: AMOXICILLIN\CLAVULANATE POTASSIUM
     Indication: URINARY TRACT INFECTION
     Dosage: 500 MG, TID
     Route: 048
     Dates: start: 20161212

REACTIONS (6)
  - Maternal exposure during pregnancy [Unknown]
  - Diarrhoea [Unknown]
  - Normal newborn [Unknown]
  - Urinary tract infection [Recovering/Resolving]
  - Vulvovaginal pain [Unknown]
  - Pregnancy on oral contraceptive [Unknown]
